FAERS Safety Report 4767402-5 (Version None)
Quarter: 2005Q3

REPORT INFORMATION
  Report Type: 
  Country: None (occurrence: None)
  Receive Date: 20050913
  Receipt Date: 20050829
  Transmission Date: 20060218
  Serious: Yes (Hospitalization)
  Sender: FDA-Public Use
  Company Number: CH-AMGEN-UK146426

PATIENT
  Age: 30 Year
  Weight: 57 kg

DRUGS (10)
  1. ARANESP [Suspect]
     Indication: RENAL TRANSPLANT
     Route: 058
     Dates: start: 20050225
  2. AZATHIOPRINE [Concomitant]
     Route: 048
     Dates: start: 19870201
  3. PREDNISONE [Concomitant]
     Route: 048
     Dates: start: 19870201
  4. CYCLOSPORINE [Concomitant]
     Route: 048
     Dates: start: 19870201
  5. ISRADIPINE [Concomitant]
     Route: 048
  6. ENALAPRIL [Concomitant]
     Route: 048
  7. ATENOLOL [Concomitant]
     Route: 048
  8. DOXAZOSIN [Concomitant]
     Route: 048
     Dates: start: 20050803
  9. CARBAMAZEPINE [Concomitant]
     Route: 048
  10. ALENDRONATE SODIUM [Concomitant]
     Route: 048
     Dates: start: 20041202

REACTIONS (1)
  - EPILEPSY [None]
